FAERS Safety Report 8954343 (Version 1)
Quarter: 2012Q4

REPORT INFORMATION
  Report Type: 
  Country: NL (occurrence: NL)
  Receive Date: 20121210
  Receipt Date: 20121210
  Transmission Date: 20130627
  Serious: Yes (Other)
  Sender: FDA-Public Use
  Company Number: PHHY2012NL105981

PATIENT
  Age: 44 Year
  Sex: Female

DRUGS (5)
  1. ZOMETA [Suspect]
     Indication: BREAST CANCER METASTATIC
     Dosage: 4 mg/ 100 ml, Once per 28 days
  2. ZOMETA [Suspect]
     Dosage: 4 mg/ 100 ml, Once per 28 days
     Dates: start: 20120530
  3. ZOMETA [Suspect]
     Dosage: 4 mg/ 100 ml, Once per 28 days
     Dates: start: 20121019
  4. ZOMETA [Suspect]
     Dosage: 4 mg/ 100 ml, Once per 28 days
     Dates: start: 20121116
  5. CHEMOTHERAPEUTICS NOS [Concomitant]

REACTIONS (6)
  - Terminal state [Unknown]
  - Pallor [Not Recovered/Not Resolved]
  - Full blood count abnormal [Unknown]
  - Fatigue [Not Recovered/Not Resolved]
  - Decreased appetite [Not Recovered/Not Resolved]
  - Asthenia [Unknown]
